FAERS Safety Report 16548663 (Version 1)
Quarter: 2019Q3

REPORT INFORMATION
  Report Type: Spontaneous
  Country: US (occurrence: US)
  Receive Date: 20190709
  Receipt Date: 20190709
  Transmission Date: 20191004
  Serious: No
  Sender: FDA-Public Use
  Company Number: US-IBSA PHARMA-TSO-2019-0050

PATIENT
  Age: 40 Year
  Sex: Female
  Weight: 55.84 kg

DRUGS (2)
  1. TIROSINT-SOL [Suspect]
     Active Substance: LEVOTHYROXINE SODIUM
     Indication: THYROIDECTOMY
     Dosage: 125MCG/ML ONCE DAILY
     Route: 048
  2. TIROSINT-SOL [Suspect]
     Active Substance: LEVOTHYROXINE SODIUM
     Indication: THYROIDECTOMY
     Dosage: 112MCG/ML DAILY
     Route: 048
     Dates: end: 20190531

REACTIONS (3)
  - Hypothyroidism [Unknown]
  - Product quality issue [Unknown]
  - Hypersomnia [Unknown]

NARRATIVE: CASE EVENT DATE: 20190601
